FAERS Safety Report 6616848-9 (Version None)
Quarter: 2010Q1

REPORT INFORMATION
  Report Type: 
  Country: None (occurrence: None)
  Receive Date: 20100305
  Receipt Date: 20100224
  Transmission Date: 20100710
  Serious: Yes (Life-Threatening, Hospitalization, Other)
  Sender: FDA-Public Use
  Company Number: US-AMGEN-QUU395587

PATIENT
  Sex: Female
  Weight: 73.5 kg

DRUGS (2)
  1. ENBREL [Suspect]
     Indication: RHEUMATOID ARTHRITIS
     Route: 058
     Dates: end: 20100101
  2. TAMOXIFEN CITRATE [Concomitant]

REACTIONS (6)
  - BREAST CANCER [None]
  - HYPERTENSION [None]
  - IDIOPATHIC THROMBOCYTOPENIC PURPURA [None]
  - INSOMNIA [None]
  - LUPUS-LIKE SYNDROME [None]
  - THROMBOCYTOPENIA [None]
